FAERS Safety Report 7536602-3 (Version None)
Quarter: 2011Q2

REPORT INFORMATION
  Report Type: 
  Country: None (occurrence: None)
  Receive Date: 20110609
  Receipt Date: 20110603
  Transmission Date: 20111010
  Serious: Yes (Other)
  Sender: FDA-Public Use
  Company Number: US-PFIZER INC-2011062592

PATIENT
  Sex: Male
  Weight: 90.703 kg

DRUGS (14)
  1. CHANTIX [Suspect]
     Indication: SMOKING CESSATION THERAPY
     Dosage: 0.5 MG, 1X/DAY
     Route: 048
     Dates: start: 20110223
  2. TRIHEXYPHENIDYL [Concomitant]
     Dosage: UNK
  3. OMEPRAZOLE [Concomitant]
     Dosage: UNK
  4. NASONEX [Concomitant]
     Dosage: UNK
  5. DOXYCYCLINE [Concomitant]
     Dosage: 100 MG, 2X/DAY
  6. CHANTIX [Suspect]
     Dosage: 1 MG, 2X/DAY
     Route: 048
     Dates: start: 20110201
  7. TRAZODONE [Concomitant]
     Dosage: UNK
  8. ATENOLOL [Concomitant]
     Indication: HYPERTENSION
     Dosage: 50 MG, 2X/DAY
     Route: 048
  9. HYDROCHLOROTHIAZIDE [Concomitant]
     Indication: HYPERTENSION
     Dosage: 12.5 MG, 1X/DAY
     Route: 048
  10. CLOZAPINE [Concomitant]
     Dosage: UNK
  11. VENTOLIN HFA [Concomitant]
     Indication: ASTHMA
     Dosage: UNK
  12. LISINOPRIL AND HYDROCHLOROTHIAZIDE [Concomitant]
     Indication: CARDIAC DISORDER
     Dosage: UNK
  13. ATENOLOL [Concomitant]
     Dosage: UNK
  14. IBUPROFEN [Concomitant]
     Dosage: UNK

REACTIONS (5)
  - ANXIETY [None]
  - BLOOD PRESSURE ABNORMAL [None]
  - HALLUCINATION [None]
  - CONFUSIONAL STATE [None]
  - ANGER [None]
